FAERS Safety Report 25904234 (Version 1)
Quarter: 2025Q4

REPORT INFORMATION
  Report Type: Spontaneous
  Country: US (occurrence: US)
  Receive Date: 20251010
  Receipt Date: 20251010
  Transmission Date: 20260118
  Serious: Yes (Hospitalization)
  Sender: SYMOGEN
  Company Number: US-PARTNER THERAPEUTICS-2025PTX00084

PATIENT
  Sex: Male
  Weight: 39.773 kg

DRUGS (5)
  1. LEUKINE [Suspect]
     Active Substance: SARGRAMOSTIM
     Indication: Agranulocytosis
     Dosage: 330 ?G (1.32 ML), UNDER THE SKIN DAILY FOR 7 DAYS, INJECT ON DAYS 6 THROUGH 12 OF EACH CYCLE
     Route: 058
  2. LEUKINE [Suspect]
     Active Substance: SARGRAMOSTIM
     Dosage: 330 ?G (1.32 ML), UNDER THE SKIN DAILY FOR 7 DAYS, INJECT ON DAYS 6 THROUGH 12 OF EACH CYCLE
     Route: 058
  3. BACTRIM [Concomitant]
     Active Substance: SULFAMETHOXAZOLE\TRIMETHOPRIM
     Dosage: 400MG-80MG
  4. LORBRENA [Concomitant]
     Active Substance: LORLATINIB
  5. STERILE WATER [Concomitant]
     Active Substance: WATER

REACTIONS (5)
  - Constipation [Unknown]
  - Nausea [Unknown]
  - Vomiting [Unknown]
  - Diarrhoea [Unknown]
  - Abdominal pain [Unknown]
